FAERS Safety Report 10179857 (Version 1)
Quarter: 2014Q2

REPORT INFORMATION
  Report Type: Spontaneous
  Country: US (occurrence: US)
  Receive Date: 20140519
  Receipt Date: 20140519
  Transmission Date: 20141212
  Serious: No
  Sender: FDA-Public Use
  Company Number: US-AMGEN INC.-USASP2013069889

PATIENT
  Age: 67 Year
  Sex: Female

DRUGS (4)
  1. PROLIA [Suspect]
     Indication: PRODUCT USED FOR UNKNOWN INDICATION
     Dosage: UNK
     Route: 065
  2. METOPROLOL [Concomitant]
     Dosage: UNK
     Route: 065
  3. LOSARTAN [Concomitant]
     Dosage: UNK
     Route: 065
  4. CALCIUM + VITAMIN D                /01483701/ [Concomitant]
     Dosage: UNK
     Route: 065

REACTIONS (7)
  - Pain [Recovered/Resolved]
  - Back pain [Recovered/Resolved]
  - Gait disturbance [Recovered/Resolved]
  - Exercise tolerance decreased [Recovered/Resolved]
  - Bone pain [Recovered/Resolved]
  - Sciatica [Recovered/Resolved]
  - Pain in extremity [Recovered/Resolved]
